FAERS Safety Report 6674442-8 (Version None)
Quarter: 2010Q2

REPORT INFORMATION
  Report Type: 
  Country: None (occurrence: None)
  Receive Date: 20100409
  Receipt Date: 20100331
  Transmission Date: 20101027
  Serious: Yes (Other)
  Sender: FDA-Public Use
  Company Number: PHHY2010JP20631

PATIENT
  Age: 72 Year
  Sex: Male

DRUGS (5)
  1. DIOVAN [Suspect]
     Indication: RENAL HYPERTENSION
     Dosage: 40 MG, BID
     Route: 048
     Dates: start: 20090402, end: 20100204
  2. AMLODIPINE [Suspect]
     Dosage: 5 MG, QD
     Route: 048
     Dates: start: 20091117
  3. AMLODIPINE [Suspect]
     Dosage: 2.5 MG, QD
     Route: 048
     Dates: end: 20100121
  4. FAMOTIDINE [Suspect]
     Dosage: 20 MG, QD
     Route: 048
     Dates: start: 20090430, end: 20100121
  5. NORVASC [Concomitant]
     Indication: HYPERTENSION
     Dosage: 10 MG, UNK
     Route: 048
     Dates: start: 20090402, end: 20091117

REACTIONS (1)
  - WHITE BLOOD CELL COUNT DECREASED [None]
